FAERS Safety Report 4451260-2 (Version None)
Quarter: 2004Q3

REPORT INFORMATION
  Report Type: 
  Country: None (occurrence: None)
  Receive Date: 20040915
  Receipt Date: 20040915
  Transmission Date: 20050211
  Serious: Yes (Life-Threatening, Hospitalization, Disabling)
  Sender: FDA-Public Use
  Company Number: None

PATIENT
  Age: 72 Year
  Sex: Female
  Weight: 81.6475 kg

DRUGS (1)
  1. MACROBID [Suspect]
     Indication: URINARY TRACT INFECTION
     Dosage: TWICE DAILY
     Dates: start: 20040719, end: 20040726

REACTIONS (6)
  - DYSPNOEA [None]
  - HEMIPARESIS [None]
  - LUNG DISORDER [None]
  - NAUSEA [None]
  - RESPIRATORY RATE INCREASED [None]
  - RETCHING [None]
